FAERS Safety Report 23049482 (Version 1)
Quarter: 2023Q4

REPORT INFORMATION
  Report Type: Report from Study
  Country: HK (occurrence: None)
  Receive Date: 20231010
  Receipt Date: 20231010
  Transmission Date: 20240109
  Serious: Yes (Hospitalization)
  Sender: FDA-Public Use
  Company Number: 2023A214426

PATIENT
  Age: 73 Year
  Sex: Female
  Weight: 156 kg

DRUGS (10)
  1. EVUSHELD [Suspect]
     Active Substance: CILGAVIMAB\TIXAGEVIMAB
     Route: 030
  2. CALCITRIOL [Concomitant]
     Active Substance: CALCITRIOL
     Indication: Nutritional supplementation
     Dosage: 0.25 MCG
     Route: 048
     Dates: start: 20210920
  3. ALLOPURINOL [Concomitant]
     Active Substance: ALLOPURINOL
     Indication: Gout
     Dosage: 50 MG
     Route: 048
     Dates: start: 20210920
  4. PANTOPRAZOLE SODIUM [Concomitant]
     Active Substance: PANTOPRAZOLE SODIUM
     Indication: Abdominal discomfort
     Dosage: 20 MG
     Route: 048
     Dates: start: 20220110
  5. CALCIUM CARBONATE [Concomitant]
     Active Substance: CALCIUM CARBONATE
     Indication: Nutritional supplementation
     Dosage: 1500 MG
     Route: 048
     Dates: start: 20210920
  6. ACYCLOVIR [Concomitant]
     Active Substance: ACYCLOVIR
     Indication: Prophylaxis
     Route: 048
     Dates: start: 20210920
  7. HEPARINOID [Concomitant]
     Indication: Drug hypersensitivity
     Dosage: APPLY 3 TIMES DAILY
     Route: 061
     Dates: start: 20211115
  8. HYDROCORTISONE ACETATE [Concomitant]
     Active Substance: HYDROCORTISONE ACETATE
     Indication: Drug hypersensitivity
     Dosage: APPLY 3 TIMES DAILY
     Route: 061
     Dates: start: 20211018
  9. ZOPICLONE [Concomitant]
     Active Substance: ZOPICLONE
     Indication: Product used for unknown indication
     Dosage: 3.25 MG
     Route: 048
     Dates: start: 20210425
  10. ASPIRIN [Concomitant]
     Active Substance: ASPIRIN
     Indication: Product used for unknown indication
     Dosage: 80 MG
     Route: 048
     Dates: start: 20220110

REACTIONS (2)
  - COVID-19 [Recovered/Resolved]
  - Pneumonia [Recovered/Resolved]

NARRATIVE: CASE EVENT DATE: 20230510
